FAERS Safety Report 16647696 (Version 2)
Quarter: 2019Q3

REPORT INFORMATION
  Report Type: Spontaneous
  Country: US (occurrence: US)
  Receive Date: 20190730
  Receipt Date: 20190816
  Transmission Date: 20191004
  Serious: Yes (Death, Other)
  Sender: FDA-Public Use
  Company Number: US-PFIZER INC-2019322491

PATIENT
  Age: 72 Year
  Sex: Female
  Weight: 68.4 kg

DRUGS (4)
  1. DILANTIN [Suspect]
     Active Substance: PHENYTOIN
     Dosage: 150 MG, DAILY (2 AT 9AM, 1 AT 3 PM, 2 AT BEDTIME)
  2. DILANTIN [Suspect]
     Active Substance: PHENYTOIN
     Dosage: 100 MG, 3X/DAY (1 AT 9 AM, 1 AT 3 PM, 1 AT BEDTIME)
  3. DILANTIN [Suspect]
     Active Substance: PHENYTOIN
     Dosage: 100 MG, 3X/DAY (ONE 100 MG CAPSULE BY MOUTH AT 9AM, ONE AT 3PM AND ONE AT BEDTIME)
     Route: 048
     Dates: end: 20190710
  4. DILANTIN [Suspect]
     Active Substance: PHENYTOIN
     Indication: SEIZURE
     Dosage: 150 MG, DAILY (TOOK FIVE 30 MG BY MOUTH A DAY; TWO AT 9, ONE AT 3PM AND TWO AT BEDTIME)
     Route: 048
     Dates: end: 20190710

REACTIONS (5)
  - Abdominal discomfort [Unknown]
  - Adrenal gland cancer [Fatal]
  - Respiratory arrest [Unknown]
  - Tremor [Unknown]
  - Unresponsive to stimuli [Unknown]

NARRATIVE: CASE EVENT DATE: 20190712
